FAERS Safety Report 11979817 (Version 3)
Quarter: 2016Q2

REPORT INFORMATION
  Report Type: Spontaneous
  Country: JP (occurrence: JP)
  Receive Date: 20160129
  Receipt Date: 20160422
  Transmission Date: 20160815
  Serious: Yes (Life-Threatening, Hospitalization, Other)
  Sender: FDA-Public Use
  Company Number: JP-ASTRAZENECA-2016SE09316

PATIENT
  Age: 21557 Day
  Sex: Male
  Weight: 45 kg

DRUGS (19)
  1. SEROQUEL [Suspect]
     Active Substance: QUETIAPINE FUMARATE
     Indication: DEPRESSION
     Route: 048
  2. DEPAKENE [Suspect]
     Active Substance: VALPROIC ACID
     Dates: start: 20151125, end: 20151125
  3. SODIUM PICOSULFATE [Concomitant]
     Active Substance: SODIUM PICOSULFATE
     Route: 048
     Dates: end: 20151125
  4. FLUNITRAZEPAM [Suspect]
     Active Substance: FLUNITRAZEPAM
     Dates: start: 20151125, end: 20151125
  5. SENNOSIDE [Suspect]
     Active Substance: SENNOSIDES
     Dates: start: 20151125, end: 20151125
  6. SEROQUEL [Suspect]
     Active Substance: QUETIAPINE FUMARATE
     Indication: ILLNESS ANXIETY DISORDER
     Route: 048
     Dates: start: 20151125, end: 20151125
  7. TAMSULOSIN [Suspect]
     Active Substance: TAMSULOSIN
     Dates: start: 20151125, end: 20151125
  8. SEROQUEL [Suspect]
     Active Substance: QUETIAPINE FUMARATE
     Indication: ILLNESS ANXIETY DISORDER
     Route: 048
  9. RISUMIC [Suspect]
     Active Substance: AMEZINIUM METILSULFATE
     Dates: start: 20151125, end: 20151125
  10. HERBAL NOS [Suspect]
     Active Substance: HERBALS
     Dates: start: 20151125, end: 20151125
  11. MOSAPRIDE CITRATE [Suspect]
     Active Substance: MOSAPRIDE CITRATE
     Dates: start: 20151125, end: 20151125
  12. BETANIS [Suspect]
     Active Substance: MIRABEGRON
     Indication: HYPERTONIC BLADDER
     Route: 048
     Dates: start: 20151125, end: 20151125
  13. MAGMITT [Suspect]
     Active Substance: MAGNESIUM OXIDE
     Dates: start: 20151125, end: 20151125
  14. BUPVERINE [Concomitant]
     Dates: end: 20151125
  15. POSTERISAN FORTE [Concomitant]
     Active Substance: LIDOCAINE
     Dates: end: 20151125
  16. RISPERIDONE. [Concomitant]
     Active Substance: RISPERIDONE
     Route: 048
     Dates: end: 20151125
  17. SEROQUEL [Suspect]
     Active Substance: QUETIAPINE FUMARATE
     Indication: DEPRESSION
     Route: 048
     Dates: start: 20151125, end: 20151125
  18. BETANIS [Suspect]
     Active Substance: MIRABEGRON
     Indication: HYPERTONIC BLADDER
     Route: 048
     Dates: end: 20151125
  19. TADALAFIL [Suspect]
     Active Substance: TADALAFIL
     Dates: start: 20151125, end: 20151125

REACTIONS (7)
  - Blood pressure decreased [Unknown]
  - Intentional overdose [Unknown]
  - Suicide attempt [Unknown]
  - Long QT syndrome [Recovered/Resolved]
  - Fall [Unknown]
  - Ventricular tachycardia [Recovered/Resolved]
  - Bundle branch block left [Unknown]

NARRATIVE: CASE EVENT DATE: 20151125
